FAERS Safety Report 14525556 (Version 1)
Quarter: 2018Q1

REPORT INFORMATION
  Report Type: Spontaneous
  Country: US (occurrence: US)
  Receive Date: 20180213
  Receipt Date: 20180213
  Transmission Date: 20180509
  Serious: Yes (Death, Hospitalization)
  Sender: FDA-Public Use
  Company Number: US-JNJFOC-20180214174

PATIENT

DRUGS (1)
  1. XARELTO [Suspect]
     Active Substance: RIVAROXABAN
     Indication: THROMBOSIS
     Route: 048
     Dates: start: 201602, end: 201701

REACTIONS (3)
  - Cerebrovascular accident [Fatal]
  - Cerebral thrombosis [Fatal]
  - Leg amputation [Unknown]

NARRATIVE: CASE EVENT DATE: 201702
